FAERS Safety Report 4493803-9 (Version None)
Quarter: 2004Q4

REPORT INFORMATION
  Report Type: 
  Country: None (occurrence: None)
  Receive Date: 20041105
  Receipt Date: 20041026
  Transmission Date: 20050328
  Serious: Yes (Other)
  Sender: FDA-Public Use
  Company Number: CZ-ABBOTT-04P-217-0278987-00

PATIENT
  Age: 37 Year
  Sex: Male

DRUGS (10)
  1. DEPAKENE [Suspect]
     Indication: DRUG ABUSER
     Route: 048
     Dates: start: 20040806, end: 20040818
  2. DEPAKENE [Suspect]
     Route: 048
     Dates: start: 20040818
  3. METHADONE HCL [Interacting]
     Indication: DRUG ABUSER
     Route: 048
     Dates: start: 20040816, end: 20040816
  4. METHADONE HCL [Interacting]
     Route: 048
     Dates: start: 20040813, end: 20040816
  5. METHADONE HCL [Interacting]
     Route: 048
     Dates: start: 20040817, end: 20040817
  6. METHADONE HCL [Interacting]
     Dates: start: 20040818
  7. LEVOMEPROMAZINE [Interacting]
     Indication: DRUG ABUSER
     Route: 048
     Dates: start: 20040806, end: 20040812
  8. LEVOMEPROMAZINE [Interacting]
     Route: 048
     Dates: start: 20040812, end: 20040818
  9. LEVOMEPROMAZINE [Interacting]
     Dates: start: 20040818
  10. LEVOMEPROMAZINE [Interacting]
     Route: 048
     Dates: start: 20040101

REACTIONS (3)
  - DRUG INTERACTION [None]
  - RESPIRATORY DEPRESSION [None]
  - SOMNOLENCE [None]
